FAERS Safety Report 4578457-5 (Version None)
Quarter: 2005Q1

REPORT INFORMATION
  Report Type: 
  Country: None (occurrence: None)
  Receive Date: 20050202
  Receipt Date: 20050202
  Transmission Date: 20050727
  Serious: Yes (Other)
  Sender: FDA-Public Use
  Company Number: None

PATIENT
  Age: 77 Year
  Sex: Male
  Weight: 154.5 kg

DRUGS (5)
  1. TAXOTERE [Suspect]
     Indication: GASTRIC CANCER
     Dosage: 140 MG Q 3 WEEKS IVPB
     Route: 042
     Dates: start: 20050112
  2. TAXOTERE [Suspect]
     Indication: GASTRIC CANCER
     Dosage: 140 MG Q 3 WEEKS IVPB
     Route: 042
     Dates: start: 20050201
  3. TAXOTERE [Suspect]
  4. TAXOTERE [Suspect]
  5. CISPLATIN [Concomitant]

REACTIONS (3)
  - BLOOD PRESSURE SYSTOLIC INCREASED [None]
  - ERYTHEMA [None]
  - FEELING HOT [None]
